FAERS Safety Report 20716401 (Version 1)
Quarter: 2022Q2

REPORT INFORMATION
  Report Type: Spontaneous
  Country: US (occurrence: US)
  Receive Date: 20220416
  Receipt Date: 20220416
  Transmission Date: 20220720
  Serious: No
  Sender: FDA-Public Use
  Company Number: US-drreddys-SPO/USA/22/0148717

PATIENT
  Age: 13 Year
  Sex: Male

DRUGS (3)
  1. ZENATANE [Suspect]
     Active Substance: ISOTRETINOIN
     Indication: Product used for unknown indication
     Dosage: RMA ISSUE DATE: 04 MARCH 2022, 11:49:37 AM;
  2. ZENATANE [Suspect]
     Active Substance: ISOTRETINOIN
     Dosage: RMA ISSUE DATE: 04 MARCH 2022, 11:49:37 AM; 28 DECEMBER 2021, 05:41:18 PM; 22 NOVEMBER 2021, 12:00:0
  3. ZENATANE [Suspect]
     Active Substance: ISOTRETINOIN
     Dosage: RMA ISSUE DATE: 01 FEBRUARY 2022, 05:41:18 PM

REACTIONS (1)
  - Adverse drug reaction [Unknown]
